FAERS Safety Report 8567836-7 (Version None)
Quarter: 2012Q3

REPORT INFORMATION
  Report Type: 
  Country: None (occurrence: None)
  Receive Date: 20120803
  Receipt Date: 20120730
  Transmission Date: 20120928
  Serious: Yes (Other)
  Sender: FDA-Public Use
  Company Number: CA-PFIZER INC-2012184385

PATIENT
  Age: 21 Year
  Sex: Female

DRUGS (1)
  1. VARENICLINE [Suspect]
     Indication: SMOKING CESSATION THERAPY
     Dosage: UNK

REACTIONS (4)
  - PHYSICAL ASSAULT [None]
  - ALCOHOL INTERACTION [None]
  - MEMORY IMPAIRMENT [None]
  - ALCOHOL POISONING [None]
